FAERS Safety Report 8888057 (Version 1)
Quarter: 2012Q4

REPORT INFORMATION
  Report Type: 
  Country: US (occurrence: US)
  Receive Date: 20121106
  Receipt Date: 20121106
  Transmission Date: 20130627
  Serious: Yes (Other)
  Sender: FDA-Public Use
  Company Number: US-ASTRAZENECA-2012SE82984

PATIENT
  Age: 60 Year
  Sex: Female

DRUGS (2)
  1. ARIMIDEX [Suspect]
     Route: 048
  2. CHEMOTHERAPY [Suspect]
     Route: 065

REACTIONS (3)
  - Breast cancer female [Unknown]
  - Thrombosis [Unknown]
  - Limb discomfort [Unknown]
